FAERS Safety Report 21734987 (Version 8)
Quarter: 2023Q2

REPORT INFORMATION
  Report Type: Report from Study
  Country: US (occurrence: None)
  Receive Date: 20221215
  Receipt Date: 20230630
  Transmission Date: 20230722
  Serious: Yes (Hospitalization, Other)
  Sender: FDA-Public Use
  Company Number: US-ROCHE-3098833

PATIENT
  Age: 74 Year
  Sex: Female
  Weight: 92 kg

DRUGS (23)
  1. RANIBIZUMAB [Suspect]
     Active Substance: RANIBIZUMAB
     Indication: Diabetic retinal oedema
     Dosage: DRUG DOSE FIRST ADMINISTERED IS 10 MG/ML, ?DOSE LAST STUDY DRUG ADMIN PRIOR AE/SAE IS 100 MG/ML.?STA
     Route: 050
     Dates: start: 20200901
  2. RANIBIZUMAB [Suspect]
     Active Substance: RANIBIZUMAB
  3. RANIBIZUMAB [Suspect]
     Active Substance: RANIBIZUMAB
  4. RANIBIZUMAB [Suspect]
     Active Substance: RANIBIZUMAB
  5. RANIBIZUMAB [Suspect]
     Active Substance: RANIBIZUMAB
  6. RANIBIZUMAB [Concomitant]
     Active Substance: RANIBIZUMAB
     Dosage: DRUG DOSE FIRST ADMINISTERED IS 6 MG/ML, ?DOSE LAST STUDY DRUG ADMIN PRIOR AE IS 6 MG/ML.?START DATE
     Route: 042
     Dates: start: 20201006
  7. FUROSEMIDE [Concomitant]
     Active Substance: FUROSEMIDE
     Indication: Hypervolaemia
     Dosage: MEDICATION ONGOING: YES
  8. ATENOLOL [Concomitant]
     Active Substance: ATENOLOL
     Indication: Hypertension
     Dosage: MEDICATION ONGOING: YES
  9. AMLODIPINE [Concomitant]
     Active Substance: AMLODIPINE BESYLATE
     Indication: Hypertension
     Dosage: MEDICATION ONGOING: YES
  10. LEVOTHYROXINE [Concomitant]
     Active Substance: LEVOTHYROXINE
     Indication: Hypothyroidism
     Dosage: MEDICATION ONGOING: YES
  11. HUMULIN 70/30 [Concomitant]
     Active Substance: INSULIN HUMAN
     Indication: Type 2 diabetes mellitus
     Dosage: MEDICATION ONGOING: YES
  12. HYDRALAZINE [Concomitant]
     Active Substance: HYDRALAZINE HYDROCHLORIDE
     Indication: Hypertension
     Dosage: MEDICATION ONGOING: YES
  13. TORSEMIDE [Concomitant]
     Active Substance: TORSEMIDE
     Indication: Hypervolaemia
     Dosage: MEDICATION ONGOING: YES
  14. FAMOTIDINE [Concomitant]
     Active Substance: FAMOTIDINE
     Indication: Gastrooesophageal reflux disease
     Dosage: MEDICATION ONGOING: YES
     Dates: start: 20200216
  15. ISOSORBIDE MONONITRATE [Concomitant]
     Active Substance: ISOSORBIDE MONONITRATE
     Indication: Coronary artery disease
     Dosage: MEDICATION ONGOING: YES.  MEDICATION DOSE: 60 OTHER.
     Dates: start: 20191219
  16. ATORVASTATIN [Concomitant]
     Active Substance: ATORVASTATIN
     Indication: Hyperlipidaemia
     Dosage: MEDICATION ONGOING: YES. MEDICATION DOSE: 40 OTHER.
     Dates: start: 20201019
  17. ASCORBIC ACID\IRON [Concomitant]
     Active Substance: ASCORBIC ACID\IRON
     Dosage: MEDICATION ONGOING: YES
     Dates: start: 20201117
  18. SYSTANE BALANCE [Concomitant]
     Active Substance: PROPYLENE GLYCOL
     Indication: Dry eye
     Dosage: MEDICATION ONGOING: YES
     Dates: start: 20201117
  19. NOVOLOG MIX FLEXPEN [Concomitant]
     Indication: Type 2 diabetes mellitus
     Dosage: NOVOLOG MIX 70-30 FLEX PEN U-100 100 UNIT/ML?70/30. MEDICATION ONGOING: YES
     Dates: start: 20201027
  20. TIMOLOL [Concomitant]
     Active Substance: TIMOLOL
     Indication: Open angle glaucoma
     Dosage: MEDICATION ONGOING: YES
     Dates: start: 20201223
  21. NOVOLOG MIX FLEXPEN [Concomitant]
     Indication: Type 2 diabetes mellitus
     Dosage: MEDICATION ONGOING: YES
     Route: 058
     Dates: start: 2017
  22. GABAPENTIN [Concomitant]
     Active Substance: GABAPENTIN
     Indication: Arteriosclerosis coronary artery
     Dosage: GIVEN FOR PROPHYLAXIS IS YES ;ONGOING: YES
  23. OFLOXACIN [Concomitant]
     Active Substance: OFLOXACIN
     Route: 047
     Dates: start: 20221018, end: 20221021

REACTIONS (2)
  - Cerebrovascular accident [Not Recovered/Not Resolved]
  - Device issue [Unknown]

NARRATIVE: CASE EVENT DATE: 20220514
